FAERS Safety Report 7043239-1 (Version None)
Quarter: 2010Q4

REPORT INFORMATION
  Report Type: 
  Country: None (occurrence: None)
  Receive Date: 20101013
  Receipt Date: 20091005
  Transmission Date: 20110411
  Serious: No
  Sender: FDA-Public Use
  Company Number: US-ASTRAZENECA-2009SE18121

PATIENT
  Age: 66 Year
  Sex: Female
  Weight: 52.2 kg

DRUGS (7)
  1. SYMBICORT [Suspect]
     Indication: ASTHMA
     Dosage: 160/4.5 1 PUFF
     Route: 055
  2. ENTAL [Concomitant]
  3. NASACORT [Concomitant]
  4. NEXIUM [Concomitant]
  5. ESTRADERM [Concomitant]
  6. FAMVIR [Concomitant]
  7. IBUPROFEN [Concomitant]

REACTIONS (7)
  - ANXIETY [None]
  - CHEST DISCOMFORT [None]
  - DIZZINESS [None]
  - HYPERHIDROSIS [None]
  - PALPITATIONS [None]
  - PANIC ATTACK [None]
  - TREMOR [None]
